FAERS Safety Report 17390193 (Version 2)
Quarter: 2020Q1

REPORT INFORMATION
  Report Type: Spontaneous
  Country: GB (occurrence: GB)
  Receive Date: 20200207
  Receipt Date: 20200302
  Transmission Date: 20200409
  Serious: Yes (Other)
  Sender: FDA-Public Use
  Company Number: GB-AMGEN-GBRSP2020019417

PATIENT
  Age: 48 Year
  Sex: Female
  Weight: 100.8 kg

DRUGS (6)
  1. MIMPARA [Concomitant]
     Active Substance: CINACALCET HYDROCHLORIDE
     Dosage: 60 MILLIGRAM, QD
     Dates: start: 20170413
  2. ARANESP [Suspect]
     Active Substance: DARBEPOETIN ALFA
     Dosage: 200 MICROGRAM, QWK
     Route: 042
  3. BISOPROLOL [Concomitant]
     Active Substance: BISOPROLOL
     Indication: HYPERTENSION
     Dosage: 2.5 MILLIGRAM, QD
  4. ARANESP [Suspect]
     Active Substance: DARBEPOETIN ALFA
     Indication: NEPHROGENIC ANAEMIA
     Dosage: UNK
     Route: 042
     Dates: start: 20070501
  5. ARANESP [Suspect]
     Active Substance: DARBEPOETIN ALFA
     Indication: RENAL DISORDER
     Dosage: UNK (INCREASED DOSE)
     Route: 042
     Dates: start: 2016
  6. AMLODIPINE [Concomitant]
     Active Substance: AMLODIPINE BESYLATE
     Indication: HYPERTENSION
     Dosage: 5 MILLIGRAM, QD

REACTIONS (1)
  - Aplasia pure red cell [Unknown]
